FAERS Safety Report 9733139 (Version 2)
Quarter: 2014Q3

REPORT INFORMATION
  Report Type: Spontaneous
  Country: SE (occurrence: SE)
  Receive Date: 20131205
  Receipt Date: 20140905
  Transmission Date: 20150326
  Serious: Yes (Other)
  Sender: FDA-Public Use
  Company Number: SE-ACTAVIS-2013-22147

PATIENT
  Sex: Female

DRUGS (1)
  1. METFORMIN ACTAVIS [Suspect]
     Active Substance: METFORMIN HYDROCHLORIDE
     Indication: TYPE 2 DIABETES MELLITUS
     Dosage: UNK
     Route: 065
     Dates: start: 20120617, end: 20120617

REACTIONS (4)
  - Alopecia [Unknown]
  - Muscle spasms [Unknown]
  - Weight decreased [Unknown]
  - Panic disorder [Unknown]
